FAERS Safety Report 5916978-0 (Version None)
Quarter: 2008Q4

REPORT INFORMATION
  Report Type: 
  Country: None (occurrence: None)
  Receive Date: 20081013
  Receipt Date: 20080929
  Transmission Date: 20090506
  Serious: Yes (Hospitalization, Other)
  Sender: FDA-Public Use
  Company Number: TR-BAUSCH-2008BL004384

PATIENT
  Age: 2 Month
  Sex: Female

DRUGS (2)
  1. CYCLOPENTOLATE HCL [Suspect]
     Indication: OPHTHALMOLOGICAL EXAMINATION
     Route: 047
  2. PHENYLEPHRINE [Suspect]
     Indication: OPHTHALMOLOGICAL EXAMINATION
     Route: 047

REACTIONS (3)
  - APNOEA [None]
  - GASTRIC DILATATION [None]
  - VOMITING [None]
